FAERS Safety Report 12215028 (Version 1)
Quarter: 2016Q1

REPORT INFORMATION
  Report Type: Report from Study
  Country: PL (occurrence: PL)
  Receive Date: 20160328
  Receipt Date: 20160328
  Transmission Date: 20160526
  Serious: Yes (Hospitalization)
  Sender: FDA-Public Use
  Company Number: PL-BAYER-2016-052154

PATIENT
  Age: 68 Year
  Sex: Male
  Weight: 80.1 kg

DRUGS (10)
  1. SORAFENIB (RAF KINASE INHIBITOR) [Suspect]
     Active Substance: SORAFENIB
     Indication: HEPATOCELLULAR CARCINOMA
     Dosage: DAILY DOSE 400MG
     Route: 048
     Dates: start: 201506, end: 20160220
  2. THERASPHERE [Suspect]
     Active Substance: YTTRIUM Y-90
     Indication: HEPATOCELLULAR CARCINOMA
  3. TRAMAL [Concomitant]
     Active Substance: TRAMADOL
     Indication: BACK PAIN
     Dosage: DAILY DOSE 100MG
     Route: 048
     Dates: start: 20160222
  4. PRIMOVIST [Suspect]
     Active Substance: GADOXETATE DISODIUM
     Indication: HEPATOCELLULAR CARCINOMA
  5. PENESTER [Concomitant]
     Indication: BENIGN PROSTATIC HYPERPLASIA
     Dosage: DAILY DOSE 5MG
     Route: 048
     Dates: start: 2013
  6. CONTROLOC [Concomitant]
     Active Substance: PANTOPRAZOLE SODIUM
     Indication: PORTAL HYPERTENSION
     Dosage: DAILY DOSE 20MG
     Route: 048
     Dates: start: 2010
  7. SPIRONOL [Concomitant]
     Active Substance: SPIRONOLACTONE
     Indication: ASCITES
     Dosage: DAILY DOSE 50MG
     Route: 048
  8. PROPRANOLOL [Concomitant]
     Active Substance: PROPRANOLOL\PROPRANOLOL HYDROCHLORIDE
     Indication: PORTAL HYPERTENSION
     Dosage: DAILY DOSE 20MG
     Route: 048
     Dates: start: 2010
  9. OMNIC [Concomitant]
     Active Substance: TAMSULOSIN HYDROCHLORIDE
     Indication: BENIGN PROSTATIC HYPERPLASIA
     Dosage: DAILY DOSE 0.4MG
     Route: 048
     Dates: start: 2013
  10. TORASEMIDE [Concomitant]
     Active Substance: TORSEMIDE
     Indication: ASCITES
     Dosage: DAILY DOSE 2.5MG
     Route: 048

REACTIONS (4)
  - Pancytopenia [Recovered/Resolved]
  - Anaemia [Recovered/Resolved]
  - Deep vein thrombosis [None]
  - Fatigue [None]

NARRATIVE: CASE EVENT DATE: 20160220
